FAERS Safety Report 10498476 (Version 3)
Quarter: 2015Q1

REPORT INFORMATION
  Report Type: Report from Study
  Country: US (occurrence: US)
  Receive Date: 20141006
  Receipt Date: 20150316
  Transmission Date: 20150720
  Serious: Yes (Other)
  Sender: FDA-Public Use
  Company Number: US-JNJFOC-20141000542

PATIENT
  Age: 49 Year
  Sex: Male
  Weight: 111.59 kg

DRUGS (2)
  1. OLYSIO [Suspect]
     Active Substance: SIMEPREVIR
     Indication: HEPATITIS C
     Route: 048
     Dates: start: 201408, end: 20140922
  2. SOVALDI [Suspect]
     Active Substance: SOFOSBUVIR
     Indication: HEPATITIS C

REACTIONS (3)
  - White blood cell count decreased [Not Recovered/Not Resolved]
  - Off label use [Recovered/Resolved]
  - Glycosylated haemoglobin decreased [Recovering/Resolving]

NARRATIVE: CASE EVENT DATE: 201406
